FAERS Safety Report 18132525 (Version 1)
Quarter: 2020Q3

REPORT INFORMATION
  Report Type: Spontaneous
  Country: US (occurrence: US)
  Receive Date: 20200811
  Receipt Date: 20200811
  Transmission Date: 20201103
  Serious: Yes (Hospitalization)
  Sender: FDA-Public Use
  Company Number: US-ROCHE-2595357

PATIENT
  Age: 17 Year
  Sex: Male
  Weight: 107.4 kg

DRUGS (2)
  1. ZELBORAF [Suspect]
     Active Substance: VEMURAFENIB
     Indication: GANGLIOGLIOMA
     Route: 048
     Dates: start: 20200316, end: 20200426
  2. ZELBORAF [Suspect]
     Active Substance: VEMURAFENIB
     Route: 048
     Dates: start: 20200306, end: 20200425

REACTIONS (6)
  - Hepatic enzyme abnormal [Not Recovered/Not Resolved]
  - Sunburn [Unknown]
  - Intentional product use issue [Unknown]
  - Off label use [Unknown]
  - Cholestasis [Recovered/Resolved]
  - Skin reaction [Not Recovered/Not Resolved]

NARRATIVE: CASE EVENT DATE: 20200426
